FAERS Safety Report 13923819 (Version 1)
Quarter: 2017Q3

REPORT INFORMATION
  Report Type: Spontaneous
  Country: US (occurrence: US)
  Receive Date: 20170831
  Receipt Date: 20170831
  Transmission Date: 20171127
  Serious: No
  Sender: FDA-Public Use
  Company Number: US-PFIZER INC-2017374895

PATIENT
  Age: 63 Year
  Sex: Male
  Weight: 81 kg

DRUGS (1)
  1. SUTENT [Suspect]
     Active Substance: SUNITINIB MALATE
     Indication: MENINGIOMA
     Dosage: 37.5 MG, CYCLIC (D1-28 Q42 DAYS) BY MOUTH
     Route: 048
     Dates: start: 20170325, end: 201708

REACTIONS (2)
  - Renal disorder [Unknown]
  - Product use in unapproved indication [Unknown]

NARRATIVE: CASE EVENT DATE: 2017
